FAERS Safety Report 25216652 (Version 1)
Quarter: 2025Q2

REPORT INFORMATION
  Report Type: Spontaneous
  Country: US (occurrence: US)
  Receive Date: 20250419
  Receipt Date: 20250419
  Transmission Date: 20250717
  Serious: Yes (Other)
  Sender: AUROBINDO
  Company Number: US-AUROBINDO-AUR-APL-2024-027306

PATIENT
  Age: 91 Year
  Sex: Male

DRUGS (1)
  1. DEXMEDETOMIDINE HYDROCHLORIDE [Suspect]
     Active Substance: DEXMEDETOMIDINE HYDROCHLORIDE
     Indication: Agitation
     Dosage: 0.5 MICROGRAM/KILOGRAM, EVERY HOUR
     Route: 065

REACTIONS (1)
  - Atrioventricular block complete [Recovered/Resolved]
